FAERS Safety Report 11917083 (Version 2)
Quarter: 2016Q1

REPORT INFORMATION
  Report Type: Spontaneous
  Country: DK (occurrence: DK)
  Receive Date: 20160114
  Receipt Date: 20160323
  Transmission Date: 20160526
  Serious: Yes (Other)
  Sender: FDA-Public Use
  Company Number: DK-SA-2016SA003912

PATIENT
  Age: 30 Year
  Sex: Female
  Weight: 73 kg

DRUGS (3)
  1. LANTUS [Suspect]
     Active Substance: INSULIN GLARGINE
     Indication: TYPE 1 DIABETES MELLITUS
     Dosage: PHARMACEUTICAL DOSE IS 231,DOSAGE IS }17 IU
     Route: 065
     Dates: start: 20141013
  2. FOLIC ACID. [Concomitant]
     Active Substance: FOLIC ACID
  3. NOVORAPID [Suspect]
     Active Substance: INSULIN ASPART
     Indication: TYPE 1 DIABETES MELLITUS
     Dosage: PHARMACEUTICAL  DOSE IS 231,DOSE IS }21 IU
     Route: 065
     Dates: start: 20141010

REACTIONS (3)
  - Myxoedema [Not Recovered/Not Resolved]
  - Exposure during pregnancy [Unknown]
  - Hypoglycaemia [Recovered/Resolved]

NARRATIVE: CASE EVENT DATE: 20150611
